FAERS Safety Report 4974152-9 (Version None)
Quarter: 2006Q2

REPORT INFORMATION
  Report Type: 
  Country: None (occurrence: None)
  Receive Date: 20060417
  Receipt Date: 20050117
  Transmission Date: 20061013
  Serious: Yes (Hospitalization)
  Sender: FDA-Public Use
  Company Number: US-MERCK-0501USA02990

PATIENT
  Age: 74 Year
  Sex: Female
  Weight: 65 kg

DRUGS (2)
  1. VIOXX [Suspect]
     Indication: ARTHRALGIA
     Route: 048
     Dates: start: 20011004, end: 20040101
  2. VIOXX [Suspect]
     Route: 048
     Dates: start: 20011004, end: 20040101

REACTIONS (12)
  - ACUTE MYOCARDIAL INFARCTION [None]
  - BLOOD PRESSURE INADEQUATELY CONTROLLED [None]
  - CARDIOMYOPATHY [None]
  - CHEST PAIN [None]
  - DIZZINESS [None]
  - DYSLIPIDAEMIA [None]
  - DYSPNOEA [None]
  - FATIGUE [None]
  - PAIN [None]
  - PALPITATIONS [None]
  - RADIUS FRACTURE [None]
  - SICK SINUS SYNDROME [None]
